FAERS Safety Report 9861374 (Version 3)
Quarter: 2014Q3

REPORT INFORMATION
  Report Type: Spontaneous
  Country: US (occurrence: US)
  Receive Date: 20140203
  Receipt Date: 20140924
  Transmission Date: 20150326
  Serious: Yes (Hospitalization, Disabling, Other)
  Sender: FDA-Public Use
  Company Number: US-AMGEN-USASP2014006361

PATIENT
  Age: 74 Year
  Sex: Female

DRUGS (3)
  1. ENBREL [Suspect]
     Active Substance: ETANERCEPT
     Indication: PSORIATIC ARTHROPATHY
     Dosage: 50 MG, QWK
     Route: 065
     Dates: start: 20010401
  2. ENBREL [Suspect]
     Active Substance: ETANERCEPT
     Indication: PSORIASIS
     Dosage: UNK
     Route: 065
  3. METHOTREXATE [Concomitant]
     Active Substance: METHOTREXATE
     Dosage: 80 MG, QWK
     Route: 065

REACTIONS (22)
  - Dystonia [Recovered/Resolved]
  - Gait disturbance [Recovered/Resolved]
  - Psoriasis [Not Recovered/Not Resolved]
  - Fluid retention [Recovered/Resolved]
  - Thrombosis [Not Recovered/Not Resolved]
  - Heart valve incompetence [Recovered/Resolved]
  - Cardiac operation [Recovered/Resolved]
  - Dyspnoea [Recovered/Resolved]
  - Mobility decreased [Recovered/Resolved]
  - Diplopia [Recovered/Resolved]
  - Loss of control of legs [Recovered/Resolved]
  - Arthralgia [Not Recovered/Not Resolved]
  - Cerebrovascular accident [Recovered/Resolved]
  - Head injury [Recovered/Resolved]
  - Breast disorder [Recovered/Resolved]
  - Condition aggravated [Not Recovered/Not Resolved]
  - Headache [Recovered/Resolved]
  - Pain [Recovered/Resolved]
  - Vision blurred [Recovered/Resolved]
  - Gout [Not Recovered/Not Resolved]
  - Fatigue [Recovered/Resolved]
  - Nausea [Recovered/Resolved]

NARRATIVE: CASE EVENT DATE: 2013
